FAERS Safety Report 5612924-8 (Version None)
Quarter: 2008Q1

REPORT INFORMATION
  Report Type: 
  Country: None (occurrence: None)
  Receive Date: 20080204
  Receipt Date: 20080122
  Transmission Date: 20080703
  Serious: No
  Sender: FDA-Public Use
  Company Number: US-BOEHRINGER INGELHEIM GMBH, GERMANY-2008-BP-01027BP

PATIENT
  Age: 66 Year
  Sex: Male

DRUGS (4)
  1. FLOMAX [Suspect]
     Indication: BENIGN PROSTATIC HYPERPLASIA
     Route: 048
     Dates: start: 20071204
  2. LOPRESSOR [Concomitant]
     Indication: HYPERTENSION
  3. DILTIAZEM [Concomitant]
     Indication: HYPERTENSION
  4. LIPITOR [Concomitant]
     Indication: HYPERCHOLESTEROLAEMIA

REACTIONS (1)
  - SEMEN VOLUME DECREASED [None]
